FAERS Safety Report 19008400 (Version 1)
Quarter: 2021Q1

REPORT INFORMATION
  Report Type: Spontaneous
  Country: NL (occurrence: NL)
  Receive Date: 20210316
  Receipt Date: 20210316
  Transmission Date: 20210420
  Serious: Yes (Other)
  Sender: FDA-Public Use
  Company Number: NL-AUROBINDO-AUR-APL-2021-010073

PATIENT
  Sex: Male
  Weight: 72 kg

DRUGS (2)
  1. MESALAZINE [Concomitant]
     Active Substance: MESALAMINE
     Indication: PRODUCT USED FOR UNKNOWN INDICATION
     Dosage: 500 MILLIGRAM
     Route: 065
  2. PANTOPRAZOLE GASTRO?RESISTANT TABLET 40 MG [Suspect]
     Active Substance: PANTOPRAZOLE
     Indication: DYSPEPSIA
     Dosage: 40 MILLIGRAM, ONCE A DAY (1X PER DAY 1 PIECE)
     Route: 065
     Dates: start: 202012, end: 20210111

REACTIONS (1)
  - Colitis ulcerative [Not Recovered/Not Resolved]
